FAERS Safety Report 9746744 (Version 3)
Quarter: 2014Q2

REPORT INFORMATION
  Report Type: Report from Study
  Country: US (occurrence: US)
  Receive Date: 20131211
  Receipt Date: 20140421
  Transmission Date: 20141212
  Serious: Yes (Hospitalization)
  Sender: FDA-Public Use
  Company Number: US-JNJFOC-20131203040

PATIENT
  Age: 70 Year
  Sex: Male
  Weight: 109.32 kg

DRUGS (21)
  1. SIMPONI [Suspect]
     Indication: RHEUMATOID ARTHRITIS
     Route: 058
     Dates: start: 200910
  2. DIOVAN [Concomitant]
     Indication: CARDIAC DISORDER
     Route: 048
  3. GABAPENTIN [Concomitant]
     Indication: NEUROPATHY PERIPHERAL
     Route: 048
  4. GABAPENTIN [Concomitant]
     Indication: SEDATION
     Route: 048
  5. ZETIA [Concomitant]
     Indication: HYPERLIPIDAEMIA
     Route: 048
  6. ZETIA [Concomitant]
     Indication: CARDIAC DISORDER
     Route: 048
  7. LEXAPRO [Concomitant]
     Indication: DEPRESSION
     Route: 048
  8. LEXAPRO [Concomitant]
     Indication: SEDATION
     Route: 048
  9. LIPITOR [Concomitant]
     Indication: HYPERLIPIDAEMIA
     Route: 048
  10. LIPITOR [Concomitant]
     Indication: CARDIAC DISORDER
     Route: 048
  11. PREDNISONE [Concomitant]
     Indication: RHEUMATOID ARTHRITIS
     Route: 048
  12. BUPROPION [Concomitant]
     Indication: DEPRESSION
     Route: 048
  13. BUPROPION [Concomitant]
     Indication: SEDATION
     Route: 048
  14. PROVIGIL [Concomitant]
     Indication: FATIGUE
     Route: 048
  15. PROVIGIL [Concomitant]
     Indication: SLEEP APNOEA SYNDROME
     Route: 048
  16. CLONAZEPAM [Concomitant]
     Indication: SLEEP APNOEA SYNDROME
     Route: 048
  17. PRADAXA [Concomitant]
     Indication: ANTICOAGULANT THERAPY
     Route: 048
     Dates: start: 2013
  18. PRADAXA [Concomitant]
     Indication: CARDIAC DISORDER
     Route: 048
     Dates: start: 2013
  19. VALACYCLOVIR [Concomitant]
     Indication: HERPES OPHTHALMIC
     Route: 048
  20. ADVAIR [Concomitant]
     Indication: ASTHMA
     Route: 055
  21. RAPAFLO [Concomitant]
     Indication: POLLAKIURIA
     Route: 048
     Dates: start: 2012

REACTIONS (3)
  - High frequency ablation [Recovered/Resolved]
  - Injection site erythema [Recovered/Resolved]
  - Injection site rash [Recovered/Resolved]
